FAERS Safety Report 18091965 (Version 1)
Quarter: 2020Q3

REPORT INFORMATION
  Report Type: Spontaneous
  Country: US (occurrence: US)
  Receive Date: 20200730
  Receipt Date: 20200730
  Transmission Date: 20201103
  Serious: Yes (Hospitalization, Other)
  Sender: FDA-Public Use
  Company Number: None

PATIENT
  Age: 62 Year
  Sex: Male
  Weight: 105 kg

DRUGS (1)
  1. PEMBROLIZUMAB (PEMBROLIZUMAB 25MG/ML INJ, SOLN, 4ML) [Suspect]
     Active Substance: PEMBROLIZUMAB
     Dosage: ?          OTHER ROUTE:IV?
     Route: 042
     Dates: start: 20190507, end: 20200313

REACTIONS (1)
  - Autoimmune hepatitis [None]

NARRATIVE: CASE EVENT DATE: 20200313
